FAERS Safety Report 21108423 (Version 1)
Quarter: 2022Q3

REPORT INFORMATION
  Report Type: Spontaneous
  Country: US (occurrence: US)
  Receive Date: 20220721
  Receipt Date: 20220721
  Transmission Date: 20221027
  Serious: Yes (Other)
  Sender: FDA-Public Use
  Company Number: US-SUN PHARMACEUTICAL INDUSTRIES LTD-2022R1-344981

PATIENT
  Age: 61 Year
  Sex: Male

DRUGS (8)
  1. BACLOFEN [Suspect]
     Active Substance: BACLOFEN
     Indication: Product used for unknown indication
     Dosage: 15 MILLIGRAM, TID
     Route: 048
  2. AMITRIPTYLINE [Concomitant]
     Active Substance: AMITRIPTYLINE
     Indication: Product used for unknown indication
     Dosage: UNK
     Route: 065
  3. DULOXETINE [Concomitant]
     Active Substance: DULOXETINE
     Indication: Product used for unknown indication
     Dosage: UNK
     Route: 065
  4. MIRTAZAPINE [Concomitant]
     Active Substance: MIRTAZAPINE
     Indication: Product used for unknown indication
     Dosage: UNK
     Route: 065
  5. PREGABALIN [Concomitant]
     Active Substance: PREGABALIN
     Indication: Product used for unknown indication
     Dosage: UNK
     Route: 065
  6. fentanyl/ziconotide/baclofen [Concomitant]
     Indication: Product used for unknown indication
     Dosage: UNK,WAS DECREASED BY 6%
     Route: 037
  7. fentanyl/ziconotide/baclofen [Concomitant]
     Dosage: UNK,THEN 15%
     Route: 037
  8. fentanyl/ziconotide/baclofen [Concomitant]
     Dosage: UNK,DECREASED BY 10%
     Route: 037

REACTIONS (1)
  - Condition aggravated [Unknown]
